FAERS Safety Report 5362510-2 (Version None)
Quarter: 2007Q2

REPORT INFORMATION
  Report Type: 
  Country: None (occurrence: None)
  Receive Date: 20070619
  Receipt Date: 20070605
  Transmission Date: 20071010
  Serious: Yes (Other)
  Sender: FDA-Public Use
  Company Number: US-SHR-US-2007-018842

PATIENT
  Age: 51 Year
  Sex: Female

DRUGS (6)
  1. BETASERON [Suspect]
     Indication: SECONDARY PROGRESSIVE MULTIPLE SCLEROSIS
     Dosage: 4 MIU, EVERY 2D
     Route: 058
     Dates: start: 20070424, end: 20070520
  2. BETASERON [Suspect]
     Dosage: 6 MIU, EVERY 2D
     Route: 058
     Dates: start: 20070525
  3. LYRICA [Concomitant]
  4. CALCIUM CHLORIDE [Concomitant]
  5. FLOMAX [Concomitant]
  6. AMITRIPTYLINE HCL [Concomitant]

REACTIONS (10)
  - ABDOMINAL DISTENSION [None]
  - CHROMATURIA [None]
  - DIZZINESS [None]
  - DRUG WITHDRAWAL SYNDROME [None]
  - HEADACHE [None]
  - INJECTION SITE ERYTHEMA [None]
  - MULTIPLE SCLEROSIS [None]
  - POLYURIA [None]
  - URINARY TRACT INFECTION [None]
  - YELLOW SKIN [None]
